FAERS Safety Report 4395129-0 (Version None)
Quarter: 2004Q2

REPORT INFORMATION
  Report Type: 
  Country: None (occurrence: None)
  Receive Date: 20040621
  Receipt Date: 20020513
  Transmission Date: 20050107
  Serious: Yes (Other)
  Sender: FDA-Public Use
  Company Number: KII-2002-0008858

PATIENT
  Age: 39 Year
  Sex: Female

DRUGS (6)
  1. OXYCONTIN [Suspect]
     Dosage: 40 MG, BID
  2. BENZODIAZEPINE DERIVATIVES [Suspect]
  3. FENTANYL [Concomitant]
  4. PERCOCET-5 [Concomitant]
  5. TRILEPTAL [Concomitant]
  6. NEURONTIN [Concomitant]

REACTIONS (5)
  - ASTHENIA [None]
  - DISORIENTATION [None]
  - DRUG ABUSER [None]
  - DRUG SCREEN POSITIVE [None]
  - LOSS OF CONSCIOUSNESS [None]
